FAERS Safety Report 17143784 (Version 1)
Quarter: 2019Q4

REPORT INFORMATION
  Report Type: Spontaneous
  Country: GB (occurrence: GB)
  Receive Date: 20191212
  Receipt Date: 20191212
  Transmission Date: 20200122
  Serious: Yes (Other)
  Sender: FDA-Public Use
  Company Number: NVSC2019GB065072

PATIENT
  Age: 72 Year
  Sex: Female
  Weight: 82 kg

DRUGS (4)
  1. METFORMIN [Concomitant]
     Active Substance: METFORMIN HYDROCHLORIDE
     Indication: PRODUCT USED FOR UNKNOWN INDICATION
     Dosage: UNK
     Route: 065
  2. TROPICAMIDE. [Suspect]
     Active Substance: TROPICAMIDE
     Indication: DIABETIC RETINOPATHY
     Dosage: 2 GTT, IN EACH EYE
     Route: 047
     Dates: start: 20191108, end: 20191108
  3. ATORVASTATIN [Concomitant]
     Active Substance: ATORVASTATIN
     Indication: PRODUCT USED FOR UNKNOWN INDICATION
     Route: 065
  4. GLIMEPIRIDE. [Concomitant]
     Active Substance: GLIMEPIRIDE
     Indication: PRODUCT USED FOR UNKNOWN INDICATION
     Dosage: UNK
     Route: 065

REACTIONS (2)
  - Dizziness [Recovered/Resolved with Sequelae]
  - Vision blurred [Recovered/Resolved with Sequelae]

NARRATIVE: CASE EVENT DATE: 20191108
